FAERS Safety Report 5192223-1 (Version None)
Quarter: 2006Q4

REPORT INFORMATION
  Report Type: 
  Country: None (occurrence: None)
  Receive Date: 20061220
  Receipt Date: 20061207
  Transmission Date: 20070319
  Serious: Yes (Hospitalization)
  Sender: FDA-Public Use
  Company Number: 2006153270

PATIENT
  Sex: Female

DRUGS (2)
  1. IRINOTECAN HCL [Suspect]
     Indication: COLON CANCER
     Dosage: 100 MG
     Dates: start: 20060320
  2. TEGAFUR/GIMERACIL/OTERACIL POTASSIUM (TEGAFUR/GIMERACIL/OTERACIL POTAS [Suspect]
     Indication: COLON CANCER
     Dates: start: 20060320

REACTIONS (1)
  - MANIA [None]
